FAERS Safety Report 10274662 (Version 3)
Quarter: 2014Q3

REPORT INFORMATION
  Report Type: Spontaneous
  Country: US (occurrence: US)
  Receive Date: 20140702
  Receipt Date: 20140826
  Transmission Date: 20150326
  Serious: No
  Sender: FDA-Public Use
  Company Number: US-PFIZER INC-2014181431

PATIENT
  Age: 6 Year
  Sex: Female

DRUGS (1)
  1. QUILLIVANT XR [Suspect]
     Active Substance: METHYLPHENIDATE HYDROCHLORIDE
     Indication: ATTENTION DEFICIT/HYPERACTIVITY DISORDER
     Dosage: 20 MG (BY TAKING 4ML OF 5MG PER ML), 1X/DAY (QAM)
     Route: 048
     Dates: start: 20140627, end: 20140627

REACTIONS (9)
  - Crying [Recovered/Resolved]
  - Movement disorder [Recovering/Resolving]
  - Tardive dyskinesia [Recovering/Resolving]
  - Hypertonia [Recovered/Resolved]
  - Muscle twitching [Recovered/Resolved]
  - Abnormal behaviour [Recovering/Resolving]
  - Irritability [Recovering/Resolving]
  - Dyskinesia [Recovered/Resolved]
  - Psychomotor hyperactivity [Recovering/Resolving]

NARRATIVE: CASE EVENT DATE: 20140627
